FAERS Safety Report 22537047 (Version 1)
Quarter: 2023Q2

REPORT INFORMATION
  Report Type: Report from Study
  Country: AU (occurrence: None)
  Receive Date: 20230608
  Receipt Date: 20230608
  Transmission Date: 20230722
  Serious: Yes (Death)
  Sender: FDA-Public Use
  Company Number: 2023A129821

PATIENT
  Age: 30 Year
  Sex: Female

DRUGS (6)
  1. QUETIAPINE [Suspect]
     Active Substance: QUETIAPINE
     Route: 048
  2. DULOXETINE [Suspect]
     Active Substance: DULOXETINE
  3. DIAZEPAM [Suspect]
     Active Substance: DIAZEPAM
  4. METHADONE [Suspect]
     Active Substance: METHADONE HYDROCHLORIDE
  5. ACETAMINOPHEN [Suspect]
     Active Substance: ACETAMINOPHEN
  6. DRONABINOL [Suspect]
     Active Substance: DRONABINOL

REACTIONS (1)
  - Toxicity to various agents [Fatal]
